FAERS Safety Report 21733856 (Version 7)
Quarter: 2023Q4

REPORT INFORMATION
  Report Type: Spontaneous
  Country: US (occurrence: US)
  Receive Date: 20221215
  Receipt Date: 20231017
  Transmission Date: 20240110
  Serious: No
  Sender: FDA-Public Use
  Company Number: US-VERTEX PHARMACEUTICALS-2022-018100

PATIENT
  Age: 76 Year
  Sex: Female
  Weight: 63 kg

DRUGS (18)
  1. TRIKAFTA [Suspect]
     Active Substance: ELEXACAFTOR\IVACAFTOR\TEZACAFTOR
     Indication: Cystic fibrosis
     Dosage: 2 ORANGE TABS IN AM AND 1 BLUE TAB IN PM
     Route: 048
     Dates: start: 20221124, end: 20221126
  2. TRIKAFTA [Suspect]
     Active Substance: ELEXACAFTOR\IVACAFTOR\TEZACAFTOR
     Dosage: REDUCED DOSE, ONE PILL IN AM AND ONE AT PM
     Route: 048
     Dates: start: 2022
  3. TRIKAFTA [Suspect]
     Active Substance: ELEXACAFTOR\IVACAFTOR\TEZACAFTOR
     Dosage: 2 PILLS PER DAY
     Route: 048
     Dates: start: 20230303, end: 2023
  4. TRIKAFTA [Suspect]
     Active Substance: ELEXACAFTOR\IVACAFTOR\TEZACAFTOR
     Dosage: REGULAR
     Route: 048
     Dates: start: 2023
  5. PLAVIX [Interacting]
     Active Substance: CLOPIDOGREL BISULFATE
     Indication: Transient ischaemic attack
     Dosage: UNK
     Route: 048
  6. PRILOSEC [Interacting]
     Active Substance: OMEPRAZOLE MAGNESIUM
     Indication: Product used for unknown indication
     Dosage: UNK
     Route: 048
  7. ALBUTEROL SULFATE [Concomitant]
     Active Substance: ALBUTEROL SULFATE
  8. SALINE [Concomitant]
     Active Substance: SODIUM CHLORIDE
  9. ALBUTEROL SULFATE [Concomitant]
     Active Substance: ALBUTEROL SULFATE
  10. DIVALPROEX SODIUM [Concomitant]
     Active Substance: DIVALPROEX SODIUM
  11. OMEPRAZOLE [Concomitant]
     Active Substance: OMEPRAZOLE
  12. DESVENLAFAXINE [Concomitant]
     Active Substance: DESVENLAFAXINE
  13. SINGULAIR [Concomitant]
     Active Substance: MONTELUKAST SODIUM
  14. METOPROLOL SUCCINATE [Concomitant]
     Active Substance: METOPROLOL SUCCINATE
  15. VITAMIN D3 [Concomitant]
     Active Substance: CHOLECALCIFEROL
  16. LEVOTHYROXINE [Concomitant]
     Active Substance: LEVOTHYROXINE
  17. ATORVASTATIN CALCIUM [Concomitant]
     Active Substance: ATORVASTATIN CALCIUM
  18. DEPAKOTE [Concomitant]
     Active Substance: DIVALPROEX SODIUM
     Indication: Ophthalmic migraine

REACTIONS (21)
  - Eye pruritus [Not Recovered/Not Resolved]
  - Productive cough [Not Recovered/Not Resolved]
  - Rhinorrhoea [Not Recovered/Not Resolved]
  - Headache [Not Recovered/Not Resolved]
  - Ageusia [Not Recovered/Not Resolved]
  - Mastication disorder [Not Recovered/Not Resolved]
  - Dry mouth [Not Recovered/Not Resolved]
  - Dysgeusia [Not Recovered/Not Resolved]
  - Flatulence [Not Recovered/Not Resolved]
  - Haemoptysis [Unknown]
  - Pseudomonas test positive [Not Recovered/Not Resolved]
  - Sinus congestion [Unknown]
  - Sinus disorder [Not Recovered/Not Resolved]
  - Product dose omission issue [Recovered/Resolved]
  - Transient ischaemic attack [Unknown]
  - Moraxella test positive [Not Recovered/Not Resolved]
  - Malaise [Not Recovered/Not Resolved]
  - Chest pain [Not Recovered/Not Resolved]
  - Dysphonia [Not Recovered/Not Resolved]
  - Urinary tract infection [Not Recovered/Not Resolved]
  - Abdominal discomfort [Unknown]

NARRATIVE: CASE EVENT DATE: 20221101
